FAERS Safety Report 9474114 (Version 2)
Quarter: 2014Q1

REPORT INFORMATION
  Report Type: Spontaneous
  Country: US (occurrence: US)
  Receive Date: 20130823
  Receipt Date: 20140227
  Transmission Date: 20141002
  Serious: Yes (Other)
  Sender: FDA-Public Use
  Company Number: US-JNJFOC-20130809370

PATIENT
  Age: 88 Year
  Sex: Female
  Weight: 78.02 kg

DRUGS (1)
  1. XARELTO [Suspect]
     Indication: HEART RATE IRREGULAR
     Route: 048
     Dates: start: 2013

REACTIONS (2)
  - Skin cancer [Not Recovered/Not Resolved]
  - Post procedural haemorrhage [Recovered/Resolved]
